FAERS Safety Report 23153568 (Version 2)
Quarter: 2023Q4

REPORT INFORMATION
  Report Type: Spontaneous
  Country: BE (occurrence: BE)
  Receive Date: 20231107
  Receipt Date: 20231110
  Transmission Date: 20240109
  Serious: Yes (Disabling, Other)
  Sender: FDA-Public Use
  Company Number: None

PATIENT
  Age: 49 Year
  Sex: Female

DRUGS (3)
  1. AVELOX [Suspect]
     Active Substance: MOXIFLOXACIN HYDROCHLORIDE
     Indication: Pneumonia viral
     Dosage: 5 DOSAGE FORMS
     Route: 030
  2. MEDROL [Suspect]
     Active Substance: METHYLPREDNISOLONE
     Indication: Pneumonia viral
     Dosage: 32 MG
  3. AIMOVIG [Concomitant]
     Active Substance: ERENUMAB-AOOE
     Dates: start: 2020

REACTIONS (4)
  - Iris atrophy [None]
  - Arthralgia [None]
  - Muscle rupture [None]
  - Iris hypopigmentation [None]
